FAERS Safety Report 16833255 (Version 5)
Quarter: 2020Q1

REPORT INFORMATION
  Report Type: Spontaneous
  Country: US (occurrence: US)
  Receive Date: 20190920
  Receipt Date: 20200124
  Transmission Date: 20200409
  Serious: Yes (Other)
  Sender: FDA-Public Use
  Company Number: US-ROCHE-2405721

PATIENT
  Age: 65 Year
  Sex: Male
  Weight: 80.36 kg

DRUGS (3)
  1. IMBRUVICA [Suspect]
     Active Substance: IBRUTINIB
     Route: 048
     Dates: end: 20190808
  2. RITUXAN [Suspect]
     Active Substance: RITUXIMAB
     Indication: CHRONIC LYMPHOCYTIC LEUKAEMIA
     Route: 041
     Dates: start: 20190816
  3. IMBRUVICA [Suspect]
     Active Substance: IBRUTINIB
     Indication: CHRONIC LYMPHOCYTIC LEUKAEMIA
     Route: 048
     Dates: start: 20190516

REACTIONS (11)
  - Tooth loss [Recovering/Resolving]
  - Dyspnoea [Recovered/Resolved]
  - Wheezing [Recovered/Resolved]
  - Influenza like illness [Recovering/Resolving]
  - Muscular weakness [Recovering/Resolving]
  - Nausea [Recovering/Resolving]
  - Chest discomfort [Recovered/Resolved]
  - Oxygen saturation decreased [Recovered/Resolved]
  - Suicidal ideation [Recovering/Resolving]
  - Platelet count increased [Recovering/Resolving]
  - Chills [Unknown]

NARRATIVE: CASE EVENT DATE: 20190530
